FAERS Safety Report 11416860 (Version 3)
Quarter: 2016Q1

REPORT INFORMATION
  Report Type: Report from Study
  Country: US (occurrence: US)
  Receive Date: 20150825
  Receipt Date: 20160203
  Transmission Date: 20160525
  Serious: No
  Sender: FDA-Public Use
  Company Number: US-AMGEN-USASP2015084694

PATIENT
  Age: 50 Year
  Sex: Female

DRUGS (2)
  1. ENBREL [Suspect]
     Active Substance: ETANERCEPT
     Dosage: UNK
     Route: 065
  2. ENBREL [Suspect]
     Active Substance: ETANERCEPT
     Indication: RHEUMATOID ARTHRITIS
     Dosage: 50 MG, QWK
     Route: 065
     Dates: start: 20150803

REACTIONS (12)
  - Injection site erythema [Unknown]
  - Injection site pain [Unknown]
  - Eye pruritus [Unknown]
  - Injection site swelling [Unknown]
  - Fatigue [Unknown]
  - Nausea [Unknown]
  - Ear pain [Unknown]
  - Injection site haemorrhage [Unknown]
  - Ear congestion [Unknown]
  - Pruritus [Unknown]
  - Pyrexia [Unknown]
  - Injection site nodule [Unknown]

NARRATIVE: CASE EVENT DATE: 201508
